FAERS Safety Report 16632632 (Version 1)
Quarter: 2019Q3

REPORT INFORMATION
  Report Type: Spontaneous
  Country: CA (occurrence: CA)
  Receive Date: 20190725
  Receipt Date: 20190725
  Transmission Date: 20191004
  Serious: Yes (Death, Hospitalization, Other)
  Sender: FDA-Public Use
  Company Number: CA-IGSA-SR10008815

PATIENT
  Age: 61 Year
  Sex: Female

DRUGS (11)
  1. CARBOXYMETHYLCELLULOSE [Concomitant]
     Active Substance: CARBOXYMETHYLCELLULOSE
     Indication: PRODUCT USED FOR UNKNOWN INDICATION
  2. COLCHICINE. [Suspect]
     Active Substance: COLCHICINE
     Indication: PYODERMA GANGRENOSUM
     Dosage: 0.6 MG, BID
     Route: 048
  3. FLUTICASONE. [Suspect]
     Active Substance: FLUTICASONE
     Indication: PYODERMA GANGRENOSUM
     Dosage: UNK, UNKNOWN
     Route: 061
  4. GAMASTAN S/D [Suspect]
     Active Substance: HUMAN IMMUNOGLOBULIN A\HUMAN IMMUNOGLOBULIN G
     Indication: PYODERMA GANGRENOSUM
     Dosage: UNK, UNKNOWN
     Route: 042
  5. CICLOSPORIN [Suspect]
     Active Substance: CYCLOSPORINE
     Indication: PYODERMA GANGRENOSUM
     Dosage: UNK, UNKNOWN
     Route: 042
  6. ARESTIN [Suspect]
     Active Substance: MINOCYCLINE HYDROCHLORIDE
     Indication: PYODERMA GANGRENOSUM
     Dosage: 100 MG, BID
     Route: 048
  7. HYDROCORTISONE. [Suspect]
     Active Substance: HYDROCORTISONE
     Indication: PYODERMA GANGRENOSUM
     Dosage: 50 MG, QID
     Route: 042
  8. PREDNISOLONE SODIUM PHOSPHATE. [Suspect]
     Active Substance: PREDNISOLONE SODIUM PHOSPHATE
     Indication: PYODERMA GANGRENOSUM
     Dosage: UNK UNK, UNKNOWN
     Route: 048
  9. PREDNISONE. [Suspect]
     Active Substance: PREDNISONE
     Indication: PYODERMA GANGRENOSUM
     Dosage: UNK, UNKNOWN
     Route: 048
  10. AZATHIOPRINE. [Suspect]
     Active Substance: AZATHIOPRINE
     Indication: PYODERMA GANGRENOSUM
     Dosage: 150 MG, BID
     Route: 048
  11. AZATHIOPRINE. [Suspect]
     Active Substance: AZATHIOPRINE
     Indication: MYASTHENIA GRAVIS
     Dosage: 100 MG, BID
     Route: 048

REACTIONS (10)
  - Enterococcal sepsis [Fatal]
  - Disseminated intravascular coagulation [Fatal]
  - Pulmonary mass [Fatal]
  - Hepatic failure [Fatal]
  - Pancytopenia [Fatal]
  - Incorrect route of product administration [Fatal]
  - Treatment failure [Fatal]
  - Off label use [Fatal]
  - Septic shock [Fatal]
  - Urinary tract infection [Fatal]
